FAERS Safety Report 21884810 (Version 1)
Quarter: 2023Q1

REPORT INFORMATION
  Report Type: Spontaneous
  Country: FR (occurrence: FR)
  Receive Date: 20230119
  Receipt Date: 20230119
  Transmission Date: 20230418
  Serious: Yes (Other)
  Sender: FDA-Public Use
  Company Number: None

PATIENT
  Age: 11 Year
  Sex: Female
  Weight: 66 kg

DRUGS (2)
  1. DOXYCYCLINE [Suspect]
     Active Substance: DOXYCYCLINE
     Indication: Hidradenitis
     Dosage: 100 MILLIGRAM, QD
     Route: 048
     Dates: start: 20221124
  2. FUCIDIN [Concomitant]
     Active Substance: FUSIDATE SODIUM
     Dosage: UNK
     Route: 065

REACTIONS (1)
  - Bell^s palsy [Recovering/Resolving]

NARRATIVE: CASE EVENT DATE: 20221127
